FAERS Safety Report 9124119 (Version 1)
Quarter: 2013Q1

REPORT INFORMATION
  Report Type: Spontaneous
  Country: US (occurrence: US)
  Receive Date: 20130116
  Receipt Date: 20130116
  Transmission Date: 20140127
  Serious: No
  Sender: FDA-Public Use
  Company Number: US-PFIZER INC-2013017589

PATIENT
  Sex: Female

DRUGS (2)
  1. LYRICA [Suspect]
     Indication: POST HERPETIC NEURALGIA
     Dosage: UNK
     Route: 048
  2. NEURONTIN [Suspect]
     Indication: POST HERPETIC NEURALGIA
     Dosage: UNK

REACTIONS (2)
  - Wheezing [Unknown]
  - Drug ineffective [Unknown]
